FAERS Safety Report 4495302-7 (Version None)
Quarter: 2004Q4

REPORT INFORMATION
  Report Type: 
  Country: None (occurrence: None)
  Receive Date: 20041108
  Receipt Date: 20040928
  Transmission Date: 20050328
  Serious: No
  Sender: FDA-Public Use
  Company Number: US-GLAXOSMITHKLINE-A0527621A

PATIENT
  Age: 71 Year
  Sex: Male

DRUGS (5)
  1. AVANDAMET [Suspect]
     Dosage: 1TAB PER DAY
     Route: 048
     Dates: start: 20040928
  2. ASPIRIN [Concomitant]
  3. WARFARIN SODIUM [Concomitant]
  4. HYZAAR [Concomitant]
  5. EZETROL [Concomitant]

REACTIONS (1)
  - DIARRHOEA [None]
